FAERS Safety Report 8378046 (Version 5)
Quarter: 2013Q3

REPORT INFORMATION
  Report Type: Report from Study
  Country: US (occurrence: US)
  Receive Date: 20120128
  Receipt Date: 20130828
  Transmission Date: 20140515
  Serious: Yes (Other)
  Sender: FDA-Public Use
  Company Number: US-ABBOTT-11P-163-0845169-00

PATIENT
  Sex: Female
  Weight: 95.34 kg

DRUGS (19)
  1. HUMIRA [Suspect]
     Indication: RHEUMATOID ARTHRITIS
     Route: 058
     Dates: start: 201101, end: 201110
  2. HUMIRA [Suspect]
     Indication: RHEUMATOID ARTHRITIS
     Route: 058
     Dates: start: 201210, end: 201305
  3. HUMIRA [Suspect]
     Dates: start: 201305, end: 201308
  4. AVALIDE [Suspect]
     Indication: HYPERTENSION
     Dosage: 300/12.5 MG
     Route: 048
  5. PREDNISONE [Suspect]
     Indication: JOINT SWELLING
     Dosage: DOSE PACK
     Dates: start: 201308, end: 201308
  6. PREDNISONE [Suspect]
     Dates: start: 201308
  7. METHOTREXATE [Concomitant]
     Indication: RHEUMATOID ARTHRITIS
  8. SULFASALAZINE [Concomitant]
     Indication: ARTHRITIS
  9. BYSTOLIC [Concomitant]
     Indication: HYPERTENSION
     Route: 048
  10. DEXTRAN TEARS PLUS [Concomitant]
     Indication: EPISCLERITIS
  11. NASONEX [Concomitant]
     Indication: HYPERSENSITIVITY
  12. SINGULAIR [Concomitant]
     Indication: ASTHMA
  13. PROBIOTIC [Concomitant]
  14. B COMPLEX [Concomitant]
  15. VITAMIN C [Concomitant]
  16. COQ10 [Concomitant]
     Route: 048
  17. CALCIUM [Concomitant]
     Route: 048
  18. EFFEXOR XR [Concomitant]
     Indication: DEPRESSION
  19. ENBREL [Concomitant]
     Dates: start: 201208, end: 201211

REACTIONS (20)
  - Carpal tunnel syndrome [Not Recovered/Not Resolved]
  - Fatigue [Not Recovered/Not Resolved]
  - Pain in extremity [Not Recovered/Not Resolved]
  - Injection site pain [Not Recovered/Not Resolved]
  - Nausea [Recovered/Resolved]
  - Back pain [Not Recovered/Not Resolved]
  - Injection site haemorrhage [Not Recovered/Not Resolved]
  - Fatigue [Not Recovered/Not Resolved]
  - Tooth disorder [Not Recovered/Not Resolved]
  - Hiatus hernia [Not Recovered/Not Resolved]
  - Blood cholesterol increased [Not Recovered/Not Resolved]
  - Toothache [Not Recovered/Not Resolved]
  - Bone erosion [Unknown]
  - Arthritis [Unknown]
  - Joint swelling [Not Recovered/Not Resolved]
  - Feeling abnormal [Not Recovered/Not Resolved]
  - Drug ineffective [Not Recovered/Not Resolved]
  - Arthralgia [Not Recovered/Not Resolved]
  - Drug ineffective [Not Recovered/Not Resolved]
  - Tremor [Not Recovered/Not Resolved]
